FAERS Safety Report 8585411-5 (Version None)
Quarter: 2012Q3

REPORT INFORMATION
  Report Type: 
  Country: None (occurrence: None)
  Receive Date: 20120810
  Receipt Date: 20120801
  Transmission Date: 20120928
  Serious: Yes (Other)
  Sender: FDA-Public Use
  Company Number: US-009507513-2012SP005042

PATIENT

DRUGS (7)
  1. PEGASYS [Suspect]
     Indication: HEPATITIS C
     Dosage: UNK
     Route: 065
     Dates: start: 20050401, end: 20060303
  2. PEGASYS [Suspect]
     Dosage: UNK
     Dates: start: 20120322
  3. REBETOL [Suspect]
     Indication: HEPATITIS C
     Dosage: UNK
     Dates: start: 20020104
  4. REBETOL [Suspect]
     Dosage: 3 DF, QD
     Dates: start: 20120322
  5. REBETOL [Suspect]
     Dosage: UNK
     Dates: start: 20050401, end: 20060303
  6. PEG-INTRON [Suspect]
     Indication: HEPATITIS C
     Dosage: UNK
     Dates: start: 20020104
  7. VICTRELIS [Suspect]
     Indication: HEPATITIS C
     Dosage: UNK
     Dates: start: 20120419

REACTIONS (19)
  - MENTAL IMPAIRMENT [None]
  - RED BLOOD CELL COUNT DECREASED [None]
  - DISEASE RECURRENCE [None]
  - PRURITUS [None]
  - DIARRHOEA [None]
  - BLOOD COUNT ABNORMAL [None]
  - PLATELET COUNT DECREASED [None]
  - FAECES HARD [None]
  - ANORECTAL DISCOMFORT [None]
  - DYSGEUSIA [None]
  - WHITE BLOOD CELL COUNT DECREASED [None]
  - APPETITE DISORDER [None]
  - OEDEMA PERIPHERAL [None]
  - RECTAL HAEMORRHAGE [None]
  - ASTHENIA [None]
  - BASEDOW'S DISEASE [None]
  - DIABETES MELLITUS [None]
  - WEIGHT DECREASED [None]
  - ALOPECIA [None]
